FAERS Safety Report 5033473-4 (Version None)
Quarter: 2006Q2

REPORT INFORMATION
  Report Type: 
  Country: None (occurrence: None)
  Receive Date: 20060621
  Receipt Date: 20060613
  Transmission Date: 20061013
  Serious: Yes (Hospitalization, Other)
  Sender: FDA-Public Use
  Company Number: 2006BH010976

PATIENT
  Sex: Female

DRUGS (1)
  1. ZOSYN [Suspect]
     Indication: INFECTION

REACTIONS (1)
  - DERMATITIS ALLERGIC [None]
